FAERS Safety Report 6651851-4 (Version None)
Quarter: 2010Q1

REPORT INFORMATION
  Report Type: 
  Country: None (occurrence: None)
  Receive Date: 20100325
  Receipt Date: 20100316
  Transmission Date: 20100710
  Serious: Yes (Hospitalization)
  Sender: FDA-Public Use
  Company Number: GB-BAXTER-2010BH007151

PATIENT
  Age: 41 Year
  Sex: Male

DRUGS (17)
  1. CYCLOPHOSPHAMIDE [Suspect]
     Indication: HIV INFECTION
     Route: 065
     Dates: start: 20071216, end: 20080104
  2. CYCLOPHOSPHAMIDE [Suspect]
     Indication: OFF LABEL USE
     Route: 065
     Dates: start: 20071216, end: 20080104
  3. DARUNAVIR [Suspect]
     Indication: HIV INFECTION
     Route: 065
     Dates: start: 20071215, end: 20080104
  4. LAMIVUDINE [Suspect]
     Indication: HIV INFECTION
     Route: 065
     Dates: start: 20080215
  5. LAMIVUDINE [Suspect]
     Route: 065
     Dates: start: 19970207, end: 20080108
  6. MARAVIROC [Suspect]
     Indication: HIV INFECTION
     Route: 065
     Dates: start: 20071215, end: 20080108
  7. MARAVIROC [Suspect]
     Route: 065
     Dates: start: 20080215
  8. RALTEGRAVIR POTASSIUM [Suspect]
     Indication: HIV INFECTION
     Route: 048
     Dates: start: 20071216, end: 20080108
  9. RALTEGRAVIR POTASSIUM [Suspect]
     Route: 048
     Dates: start: 20080215
  10. RITONAVIR [Suspect]
     Indication: DRUG USE FOR UNKNOWN INDICATION
     Route: 065
     Dates: start: 20080215
  11. RITONAVIR [Suspect]
     Route: 065
     Dates: start: 19970204, end: 20080104
  12. ACETYLSALICYLIC ACID [Concomitant]
     Indication: DRUG USE FOR UNKNOWN INDICATION
     Route: 065
  13. ATORVASTATIN CALCIUM [Concomitant]
     Indication: DRUG USE FOR UNKNOWN INDICATION
     Route: 065
  14. LOVAZA [Concomitant]
     Indication: DRUG USE FOR UNKNOWN INDICATION
     Route: 065
  15. SEPTRIN [Concomitant]
     Indication: DRUG USE FOR UNKNOWN INDICATION
     Route: 065
     Dates: start: 19960101, end: 20080104
  16. TIPRANAVIR [Concomitant]
     Indication: DRUG USE FOR UNKNOWN INDICATION
     Route: 065
     Dates: start: 20080215
  17. VITAMINS [Concomitant]
     Indication: DRUG USE FOR UNKNOWN INDICATION
     Route: 065

REACTIONS (5)
  - ABDOMINAL DISTENSION [None]
  - NAUSEA [None]
  - STEVENS-JOHNSON SYNDROME [None]
  - VIRAL LOAD INCREASED [None]
  - WEIGHT DECREASED [None]
